FAERS Safety Report 10195564 (Version 1)
Quarter: 2014Q2

REPORT INFORMATION
  Report Type: Spontaneous
  Country: FR (occurrence: FR)
  Receive Date: 20140527
  Receipt Date: 20140527
  Transmission Date: 20141212
  Serious: Yes (Death)
  Sender: FDA-Public Use
  Company Number: PHHY2014FR062957

PATIENT
  Age: 59 Year
  Sex: Female

DRUGS (2)
  1. QUETIAPINE [Suspect]
  2. ZOPICLONE [Suspect]

REACTIONS (2)
  - Completed suicide [Fatal]
  - Drowning [Fatal]
